FAERS Safety Report 24732304 (Version 1)
Quarter: 2024Q4

REPORT INFORMATION
  Report Type: Spontaneous
  Country: US (occurrence: US)
  Receive Date: 20241213
  Receipt Date: 20241213
  Transmission Date: 20250115
  Serious: No
  Sender: ROCHE
  Company Number: US-ROCHE-10000152534

PATIENT
  Age: 75 Year
  Sex: Female

DRUGS (7)
  1. RITUXIMAB [Suspect]
     Active Substance: RITUXIMAB
     Indication: Central nervous system lymphoma
     Route: 065
  2. METHOTREXATE [Concomitant]
     Active Substance: METHOTREXATE
     Dosage: 8 G/M2
     Dates: start: 201601, end: 201606
  3. METHOTREXATE [Concomitant]
     Active Substance: METHOTREXATE
     Dosage: 8 G/M2
     Dates: start: 201708
  4. TEMOZOLOMIDE [Concomitant]
     Active Substance: TEMOZOLOMIDE
  5. IBRUTINIB [Concomitant]
     Active Substance: IBRUTINIB
  6. IBRUTINIB [Concomitant]
     Active Substance: IBRUTINIB
     Route: 048
     Dates: start: 201803
  7. IBRUTINIB [Concomitant]
     Active Substance: IBRUTINIB

REACTIONS (2)
  - Off label use [Unknown]
  - No adverse event [Unknown]
